FAERS Safety Report 26026250 (Version 1)
Quarter: 2025Q4

REPORT INFORMATION
  Report Type: Spontaneous
  Country: EG (occurrence: EG)
  Receive Date: 20251111
  Receipt Date: 20251111
  Transmission Date: 20260117
  Serious: Yes (Life-Threatening, Hospitalization, Other)
  Sender: HIKMA
  Company Number: EG-HIKMA PHARMACEUTICALS USA INC.-EG-H14001-25-11986

PATIENT

DRUGS (5)
  1. ETOPOSIDE [Suspect]
     Active Substance: ETOPOSIDE
     Indication: Non-Hodgkin^s lymphoma
     Dosage: 150 MILLIGRAM, 3W (CYCLE 1, DAY 1)
     Route: 041
     Dates: start: 20250712
  2. ETOPOSIDE [Suspect]
     Active Substance: ETOPOSIDE
     Dosage: 150 MILLIGRAM, 3W (CYCLE 1, DAY 3)
     Route: 041
     Dates: start: 20250714
  3. CARBOPLATIN [Concomitant]
     Active Substance: CARBOPLATIN
     Indication: Non-Hodgkin^s lymphoma
     Dosage: 497 MILLIGRAM, 3W, DAY ONE
     Route: 041
     Dates: start: 20250712, end: 20250712
  4. IFOSFAMIDE [Concomitant]
     Active Substance: IFOSFAMIDE
     Indication: Non-Hodgkin^s lymphoma
     Dosage: 2.5 GRAM, 3W (DAY 1-3)
     Route: 041
     Dates: start: 20250712, end: 20250713
  5. MESNA [Concomitant]
     Active Substance: MESNA
     Indication: Non-Hodgkin^s lymphoma
     Dosage: 4.5 GRAM, 3W (FROM DAY 1 TO DAY 3)
     Route: 042
     Dates: start: 20250712, end: 20250713

REACTIONS (6)
  - Oxygen saturation decreased [Recovered/Resolved]
  - Respiratory rate increased [Recovered/Resolved]
  - Cough [Recovered/Resolved]
  - Dyspnoea [Recovered/Resolved]
  - Heart rate increased [Recovered/Resolved]
  - Bronchospasm [Recovered/Resolved]

NARRATIVE: CASE EVENT DATE: 20250714
